FAERS Safety Report 5571280-4 (Version None)
Quarter: 2007Q4

REPORT INFORMATION
  Report Type: 
  Country: None (occurrence: None)
  Receive Date: 20071221
  Receipt Date: 20070420
  Transmission Date: 20080405
  Serious: No
  Sender: FDA-Public Use
  Company Number: A0648174A

PATIENT
  Age: 45 Year
  Sex: Female

DRUGS (1)
  1. FLUTICASONE PROPIONATE [Suspect]
     Dosage: 2PUFF PER DAY
     Route: 045

REACTIONS (3)
  - APHONIA [None]
  - DRUG INEFFECTIVE [None]
  - INCREASED UPPER AIRWAY SECRETION [None]
